FAERS Safety Report 9377187 (Version 3)
Quarter: 2013Q3

REPORT INFORMATION
  Report Type: Spontaneous
  Country: US (occurrence: US)
  Receive Date: 20130701
  Receipt Date: 20130813
  Transmission Date: 20140515
  Serious: Yes (Hospitalization)
  Sender: FDA-Public Use
  Company Number: US-PFIZER INC-2013194383

PATIENT
  Age: 64 Year
  Sex: Female
  Weight: 84.35 kg

DRUGS (13)
  1. LYRICA [Suspect]
     Indication: NEUROPATHY PERIPHERAL
     Dosage: 100 MG, 3X/DAY
     Route: 048
     Dates: end: 201303
  2. LYRICA [Suspect]
     Indication: DIABETIC NEUROPATHY
  3. ACIPHEX [Concomitant]
     Indication: GASTROOESOPHAGEAL REFLUX DISEASE
     Dosage: 20 MG, 1X/DAY
  4. ACIPHEX [Concomitant]
     Dosage: UNK
  5. ASPIRIN [Concomitant]
     Indication: PROPHYLAXIS
     Dosage: 325 MG, 1X/DAY
  6. ASPIRIN [Concomitant]
     Dosage: UNK
  7. RANITIDINE [Concomitant]
     Dosage: UNK, 2X/DAY
  8. METFORMIN [Concomitant]
     Indication: DIABETES MELLITUS
     Dosage: 500MG DAILY
  9. PRAVASTATIN [Concomitant]
     Indication: BLOOD CHOLESTEROL ABNORMAL
     Dosage: 20 MG DAILY
  10. PRAVASTATIN [Concomitant]
     Dosage: UNK
  11. NOVOLOG [Concomitant]
     Indication: DIABETES MELLITUS
     Dosage: UNK
  12. LEVEMIR [Concomitant]
     Indication: DIABETES MELLITUS
     Dosage: 15 IU, 1X/DAY
  13. METANX [Concomitant]
     Dosage: UNK

REACTIONS (3)
  - Hypertension [Unknown]
  - Blood glucose increased [Unknown]
  - Pain in extremity [Unknown]
